FAERS Safety Report 9720154 (Version 2)
Quarter: 2013Q4

REPORT INFORMATION
  Report Type: Report from Study
  Country: DE (occurrence: DE)
  Receive Date: 20131129
  Receipt Date: 20131206
  Transmission Date: 20140711
  Serious: Yes (Hospitalization)
  Sender: FDA-Public Use
  Company Number: CHPA2013DE017193

PATIENT
  Age: 75 Year
  Sex: Male
  Weight: 83 kg

DRUGS (2)
  1. NICOTINELL TTS [Suspect]
     Indication: PARKINSON^S DISEASE
     Dosage: 21 MG, QD
     Route: 062
     Dates: start: 20130717, end: 20131022
  2. ENAHEXAL [Concomitant]
     Indication: HYPERTENSION
     Dosage: 10 MG, BID
     Route: 048
     Dates: start: 201210, end: 20131111

REACTIONS (1)
  - Coronary artery disease [Recovering/Resolving]
